FAERS Safety Report 14639944 (Version 2)
Quarter: 2018Q2

REPORT INFORMATION
  Report Type: Spontaneous
  Country: US (occurrence: US)
  Receive Date: 20180315
  Receipt Date: 20180421
  Transmission Date: 20180711
  Serious: Yes (Death, Life-Threatening)
  Sender: FDA-Public Use
  Company Number: US-SUN PHARMACEUTICAL INDUSTRIES LTD-2018US-166318

PATIENT
  Age: 69 Year
  Sex: Male

DRUGS (3)
  1. DOCETAXEL. [Suspect]
     Active Substance: DOCETAXEL
     Indication: PROSTATE CANCER RECURRENT
     Dosage: UNK
     Route: 065
  2. OLAPARIB. [Suspect]
     Active Substance: OLAPARIB
     Indication: PROSTATE CANCER RECURRENT
     Dosage: UNK
     Route: 065
  3. TAXOTERE [Suspect]
     Active Substance: DOCETAXEL
     Indication: PROSTATE CANCER RECURRENT
     Dosage: THREE CYCLE
     Route: 065

REACTIONS (3)
  - Histiocytosis haematophagic [Unknown]
  - Multiple organ dysfunction syndrome [Fatal]
  - Erythroleukaemia [Unknown]
